FAERS Safety Report 7889187-6 (Version None)
Quarter: 2011Q4

REPORT INFORMATION
  Report Type: 
  Country: None (occurrence: None)
  Receive Date: 20111101
  Receipt Date: 20111017
  Transmission Date: 20120403
  Serious: Yes (Hospitalization)
  Sender: FDA-Public Use
  Company Number: 2011MA015281

PATIENT
  Age: 52 Year
  Sex: Female

DRUGS (12)
  1. ASPIRIN [Concomitant]
  2. CARBAMAZEPINE [Suspect]
     Indication: EPILEPSY
     Dosage: 600 MG;QD
  3. LAMOTRIGINE [Concomitant]
  4. ENALAPRIL MALEATE [Concomitant]
  5. AMLODIPINE [Concomitant]
  6. METFORMIN HCL [Concomitant]
  7. ATENOLOL [Concomitant]
  8. BENDROFLUMETHIAZIDE [Concomitant]
  9. GLICLAZIDE [Concomitant]
  10. ATORVASTATIN [Concomitant]
  11. DIPYRIDAMOLE [Concomitant]
  12. CITALOPRAM HYDROBROMIDE [Concomitant]

REACTIONS (16)
  - MUSCULAR WEAKNESS [None]
  - COORDINATION ABNORMAL [None]
  - URINARY TRACT INFECTION ENTEROCOCCAL [None]
  - LETHARGY [None]
  - HYPONATRAEMIA [None]
  - SHUNT OCCLUSION [None]
  - BLOOD PRESSURE INCREASED [None]
  - HYPERREFLEXIA [None]
  - BLOOD ALBUMIN DECREASED [None]
  - HYPOKALAEMIA [None]
  - BLOOD GLUCOSE INCREASED [None]
  - CONFUSIONAL STATE [None]
  - BLOOD LACTIC ACID INCREASED [None]
  - HYPERAMMONAEMIA [None]
  - VULVOVAGINAL DISCOMFORT [None]
  - NEUTROPHILIA [None]
